FAERS Safety Report 21889927 (Version 1)
Quarter: 2023Q1

REPORT INFORMATION
  Report Type: Spontaneous
  Country: US (occurrence: None)
  Receive Date: 20230119
  Receipt Date: 20230119
  Transmission Date: 20230418
  Serious: No
  Sender: FDA-Public Use
  Company Number: None

PATIENT
  Age: 51 Year
  Sex: Female
  Weight: 78.75 kg

DRUGS (11)
  1. ESTRADIOL TRANSDERMAL SYSTEM [Suspect]
     Active Substance: ESTRADIOL
     Indication: Hormone level abnormal
     Dosage: OTHER QUANTITY : 1 PATCH(ES);?OTHER FREQUENCY : TWICE WEEKLY;?
     Route: 061
     Dates: start: 20221216, end: 20230107
  2. VYVANSE [Concomitant]
     Active Substance: LISDEXAMFETAMINE DIMESYLATE
  3. BUPROPION CL XL [Concomitant]
  4. ESTRADIOL [Concomitant]
  5. PROGESTERONE [Concomitant]
     Active Substance: PROGESTERONE
  6. LEVOTHYROXINE [Concomitant]
     Active Substance: LEVOTHYROXINE
  7. KETOCONAZOLE [Concomitant]
     Active Substance: KETOCONAZOLE
  8. TRETINOIN [Concomitant]
     Active Substance: TRETINOIN
  9. VITAMIN D [Concomitant]
  10. MULTI VITAMIN [Concomitant]
  11. ZINC [Concomitant]
     Active Substance: ZINC

REACTIONS (4)
  - Application site erythema [None]
  - Application site rash [None]
  - Application site pruritus [None]
  - Product substitution issue [None]
